FAERS Safety Report 18597183 (Version 1)
Quarter: 2020Q4

REPORT INFORMATION
  Report Type: Spontaneous
  Country: ES (occurrence: ES)
  Receive Date: 20201209
  Receipt Date: 20201209
  Transmission Date: 20210114
  Serious: Yes (Other)
  Sender: FDA-Public Use
  Company Number: ES-TEVA-2020-ES-1856124

PATIENT
  Age: 46 Year
  Sex: Male
  Weight: 64 kg

DRUGS (4)
  1. AMOXICILINA/ACIDO CLAVULANICO TEVAGEN 875 MG/125 MG COMPRIMIDOS RECUBI [Suspect]
     Active Substance: AMOXICILLIN\CLAVULANIC ACID
     Indication: INFECTION
     Dosage: UNIT DOSE : 1 DOSAGE FORMS
     Route: 048
     Dates: start: 20201105, end: 20201111
  2. NOLOTIL 575 MG CAPSULAS DURAS, 20 CAPSULAS [Suspect]
     Active Substance: METAMIZOLE MAGNESIUM
     Indication: ANALGESIC THERAPY
     Dosage: UNIT DOSE : 575 MG
     Route: 048
     Dates: start: 20201105, end: 20201107
  3. ENANTYUM 12,5 MG COMPRIMIDOS, 20 COMPRIMIDOS [Suspect]
     Active Substance: DEXKETOPROFEN TROMETAMOL
     Indication: ANTIINFLAMMATORY THERAPY
     Dosage: UNIT DOSE : 12.5 MG
     Route: 048
     Dates: start: 20201105, end: 20201110
  4. ENANTYUM 50 MG/2 ML SOLUCION INYECTABLE Y PARA PERFUSION , 6 AMPOLLAS [Concomitant]
     Indication: ANTIINFLAMMATORY THERAPY
     Route: 042
     Dates: start: 20201102, end: 20201104

REACTIONS (3)
  - Muscle contracture [Recovering/Resolving]
  - Rash [Recovering/Resolving]
  - Hepatitis mumps [Recovering/Resolving]

NARRATIVE: CASE EVENT DATE: 20201106
